FAERS Safety Report 14204024 (Version 2)
Quarter: 2018Q1

REPORT INFORMATION
  Report Type: Spontaneous
  Country: US (occurrence: US)
  Receive Date: 20171120
  Receipt Date: 20180110
  Transmission Date: 20180508
  Serious: No
  Sender: FDA-Public Use
  Company Number: US-PFIZER INC-2017494382

PATIENT
  Age: 78 Year
  Sex: Female
  Weight: 47 kg

DRUGS (1)
  1. LATANOPROST. [Suspect]
     Active Substance: LATANOPROST
     Indication: GLAUCOMA
     Dosage: UNK, 1X/DAY, OPHTHALMIC SOLUTION, ONE DROP IN EACH EYE EVERY EVENING
     Route: 047

REACTIONS (7)
  - Conjunctival hyperaemia [Recovering/Resolving]
  - Intraocular pressure increased [Recovering/Resolving]
  - Rash [Recovering/Resolving]
  - Dyspnoea [Recovering/Resolving]
  - Insomnia [Recovering/Resolving]
  - Eye irritation [Recovering/Resolving]
  - Heart rate increased [Recovering/Resolving]

NARRATIVE: CASE EVENT DATE: 20171110
